FAERS Safety Report 20500426 (Version 3)
Quarter: 2022Q3

REPORT INFORMATION
  Report Type: Report from Study
  Country: US (occurrence: US)
  Receive Date: 20220222
  Receipt Date: 20220923
  Transmission Date: 20221027
  Serious: Yes (Hospitalization, Other)
  Sender: FDA-Public Use
  Company Number: US-TAKEDA-2022TUS010554

PATIENT
  Sex: Female

DRUGS (25)
  1. TEDUGLUTIDE [Suspect]
     Active Substance: TEDUGLUTIDE
     Indication: Short-bowel syndrome
     Dosage: 1.975 MILLIGRAM, QD
     Route: 058
  2. TEDUGLUTIDE [Suspect]
     Active Substance: TEDUGLUTIDE
     Indication: Short-bowel syndrome
     Dosage: 1.975 MILLIGRAM, QD
     Route: 058
  3. TEDUGLUTIDE [Suspect]
     Active Substance: TEDUGLUTIDE
     Indication: Short-bowel syndrome
     Dosage: 1.975 MILLIGRAM, QD
     Route: 058
  4. TEDUGLUTIDE [Suspect]
     Active Substance: TEDUGLUTIDE
     Indication: Short-bowel syndrome
     Dosage: 1.975 MILLIGRAM, QD
     Route: 058
  5. BACTRIM DS [Concomitant]
     Active Substance: SULFAMETHOXAZOLE\TRIMETHOPRIM
  6. AMITIZA [Concomitant]
     Active Substance: LUBIPROSTONE
  7. LEVETIRACETAM [Concomitant]
     Active Substance: LEVETIRACETAM
  8. RIZATRIPTAN [Concomitant]
     Active Substance: RIZATRIPTAN
  9. LINZESS [Concomitant]
     Active Substance: LINACLOTIDE
  10. TRAZODONE HCL [Concomitant]
     Active Substance: TRAZODONE HYDROCHLORIDE
  11. SUMATRIPTAN [Concomitant]
     Active Substance: SUMATRIPTAN
  12. TOPIRAMATE [Concomitant]
     Active Substance: TOPIRAMATE
  13. ONDANSETRON HCL [Concomitant]
     Active Substance: ONDANSETRON HYDROCHLORIDE
  14. PHENYTOIN [Concomitant]
     Active Substance: PHENYTOIN
  15. LORAZEPAM [Concomitant]
     Active Substance: LORAZEPAM
  16. BENADRYL [Concomitant]
     Active Substance: DIPHENHYDRAMINE HYDROCHLORIDE
  17. ORPHENADRINE CITRATE [Concomitant]
     Active Substance: ORPHENADRINE CITRATE
  18. GRANISETRON HYDROCHLORIDE [Concomitant]
     Active Substance: GRANISETRON HYDROCHLORIDE
  19. PYRIDOXINE HYDROCHLORIDE [Concomitant]
     Active Substance: PYRIDOXINE HYDROCHLORIDE
  20. TRANSDERM SCOP [Concomitant]
     Active Substance: SCOPOLAMINE
  21. REMERON [Concomitant]
     Active Substance: MIRTAZAPINE
  22. MIRTAZAPINE [Concomitant]
     Active Substance: MIRTAZAPINE
  23. CYPROHEPTADINE HYDROCHLORIDE [Concomitant]
     Active Substance: CYPROHEPTADINE HYDROCHLORIDE
  24. QUETIAPINE [Concomitant]
     Active Substance: QUETIAPINE
  25. DISODIUM FUMARATE [Concomitant]
     Active Substance: DISODIUM FUMARATE

REACTIONS (3)
  - Intestinal obstruction [Unknown]
  - Rectal prolapse [Unknown]
  - Product dose omission issue [Unknown]
